FAERS Safety Report 6450226-0 (Version None)
Quarter: 2009Q4

REPORT INFORMATION
  Report Type: 
  Country: None (occurrence: None)
  Receive Date: 20091123
  Receipt Date: 20091110
  Transmission Date: 20100525
  Serious: Yes (Hospitalization)
  Sender: FDA-Public Use
  Company Number: DE-AMGEN-US374690

PATIENT
  Age: 52 Year
  Sex: Female

DRUGS (3)
  1. ENBREL [Suspect]
     Indication: PSORIATIC ARTHROPATHY
     Route: 058
     Dates: start: 20080501, end: 20090101
  2. TRAMADOL HCL [Concomitant]
     Route: 065
  3. ARAVA [Concomitant]
     Route: 065

REACTIONS (3)
  - CONDITION AGGRAVATED [None]
  - PSORIATIC ARTHROPATHY [None]
  - TENDON RUPTURE [None]
